FAERS Safety Report 6111883-1 (Version None)
Quarter: 2009Q1

REPORT INFORMATION
  Report Type: 
  Country: None (occurrence: None)
  Receive Date: 20090311
  Receipt Date: 20090303
  Transmission Date: 20090719
  Serious: Yes (Other)
  Sender: FDA-Public Use
  Company Number: JP-WATSON-2009-01457

PATIENT
  Age: 58 Year
  Sex: Male

DRUGS (8)
  1. RAPAFLO [Suspect]
     Indication: BENIGN PROSTATIC HYPERPLASIA
     Dosage: 8 MG, DAILY
     Route: 048
     Dates: start: 20090111, end: 20090221
  2. OLMETEC [Suspect]
     Indication: HYPERTENSION
     Dosage: 20 MG, DAILY
     Route: 048
  3. ACTOS [Concomitant]
     Indication: DRUG USE FOR UNKNOWN INDICATION
     Dosage: UNK
     Route: 048
  4. OMEPRAL                            /00661201/ [Concomitant]
     Indication: DRUG USE FOR UNKNOWN INDICATION
     Dosage: UNK
     Route: 065
  5. LIPIDIL [Concomitant]
     Indication: DRUG USE FOR UNKNOWN INDICATION
     Dosage: UNK
     Route: 048
  6. AMARYL [Concomitant]
     Indication: DRUG USE FOR UNKNOWN INDICATION
     Dosage: UNK
     Route: 048
  7. NATRIX [Concomitant]
     Indication: DRUG USE FOR UNKNOWN INDICATION
     Dosage: UNK
     Route: 048
  8. MIGLITOL [Concomitant]
     Indication: DRUG USE FOR UNKNOWN INDICATION
     Dosage: UNK
     Route: 048

REACTIONS (2)
  - BLOOD PRESSURE DECREASED [None]
  - SHOCK [None]
